FAERS Safety Report 5636210-5 (Version None)
Quarter: 2008Q1

REPORT INFORMATION
  Report Type: 
  Country: None (occurrence: None)
  Receive Date: 20080220
  Receipt Date: 20080220
  Transmission Date: 20080703
  Serious: Yes (Hospitalization)
  Sender: FDA-Public Use
  Company Number: None

PATIENT
  Sex: Male
  Weight: 99.8 kg

DRUGS (1)
  1. CYTARABINE [Suspect]
     Dosage: 5000 MG

REACTIONS (4)
  - CONDITION AGGRAVATED [None]
  - LUNG NEOPLASM [None]
  - PLEURAL EFFUSION [None]
  - RESPIRATORY DISORDER [None]
